FAERS Safety Report 12123108 (Version 1)
Quarter: 2016Q1

REPORT INFORMATION
  Report Type: Spontaneous
  Country: US (occurrence: None)
  Receive Date: 20160226
  Receipt Date: 20160226
  Transmission Date: 20160526
  Serious: Yes (Life-Threatening)
  Sender: FDA-Public Use
  Company Number: None

PATIENT
  Age: 76 Year
  Sex: Male
  Weight: 81 kg

DRUGS (4)
  1. PHYTONADIONE. [Concomitant]
     Active Substance: PHYTONADIONE
  2. KCENTRA [Suspect]
     Active Substance: COAGULATION FACTOR IX HUMAN\COAGULATION FACTOR VII HUMAN\COAGULATION FACTOR X HUMAN\PROTEIN C\PROTEIN S HUMAN\PROTHROMBIN
     Indication: INTERNATIONAL NORMALISED RATIO INCREASED
     Route: 042
     Dates: start: 20151229
  3. NICARDIPINE [Concomitant]
     Active Substance: NICARDIPINE
  4. FENTANYL. [Concomitant]
     Active Substance: FENTANYL

REACTIONS (3)
  - Blood pressure decreased [None]
  - Hypersensitivity [None]
  - Cerebral haemorrhage [None]

NARRATIVE: CASE EVENT DATE: 20141229
